FAERS Safety Report 21238205 (Version 4)
Quarter: 2022Q3

REPORT INFORMATION
  Report Type: Spontaneous
  Country: PH (occurrence: PH)
  Receive Date: 20220822
  Receipt Date: 20220929
  Transmission Date: 20221027
  Serious: Yes (Other)
  Sender: FDA-Public Use
  Company Number: PH-GALDERMA-PH2022011532

PATIENT

DRUGS (2)
  1. LYMECYCLINE [Suspect]
     Active Substance: LYMECYCLINE
     Indication: Acne
     Dosage: 1 DOSAGE FORM, QD, 1 CAPSULE
     Route: 048
     Dates: start: 20220723, end: 20220805
  2. EPIDUO [Suspect]
     Active Substance: ADAPALENE\BENZOYL PEROXIDE
     Indication: Acne
     Dosage: 1 DOSAGE FORM, QD, EVERY EVENING
     Route: 061
     Dates: start: 20220723, end: 20220805

REACTIONS (16)
  - Stevens-Johnson syndrome [Recovered/Resolved]
  - Eye pruritus [Recovered/Resolved]
  - Mouth swelling [Recovered/Resolved]
  - Lip swelling [Recovered/Resolved]
  - Type IV hypersensitivity reaction [Recovered/Resolved]
  - Eyelid margin crusting [Recovered/Resolved]
  - Lip pain [Recovered/Resolved]
  - Dysphagia [Recovered/Resolved]
  - Ocular hyperaemia [Recovered/Resolved]
  - Rash [Recovered/Resolved]
  - Skin exfoliation [Not Recovered/Not Resolved]
  - Eye pain [Recovering/Resolving]
  - Oropharyngeal pain [Recovering/Resolving]
  - Scab [Recovering/Resolving]
  - Skin hyperpigmentation [Not Recovered/Not Resolved]
  - Urticaria [Not Recovered/Not Resolved]

NARRATIVE: CASE EVENT DATE: 20220801
